FAERS Safety Report 8212754-7 (Version None)
Quarter: 2012Q1

REPORT INFORMATION
  Report Type: 
  Country: None (occurrence: None)
  Receive Date: 20120315
  Receipt Date: 20120302
  Transmission Date: 20120608
  Serious: Yes (Death, Life-Threatening, Hospitalization, Other)
  Sender: FDA-Public Use
  Company Number: FR-CELGENEUS-056-21880-10102251

PATIENT
  Sex: Male
  Weight: 56 kg

DRUGS (7)
  1. DEXAMETHASONE [Suspect]
     Indication: ACUTE LYMPHOCYTIC LEUKAEMIA
     Route: 065
     Dates: end: 20100901
  2. RED BLOOD CELLS [Concomitant]
     Dosage: 2 UNITS
     Route: 065
  3. VANCOMYCIN [Concomitant]
     Route: 065
  4. REVLIMID [Suspect]
     Route: 048
     Dates: start: 20100922, end: 20100925
  5. REVLIMID [Suspect]
     Indication: B-CELL TYPE ACUTE LEUKAEMIA
     Dosage: 25 MILLIGRAM
     Route: 048
     Dates: start: 20100825, end: 20100920
  6. DEXAMETHASONE [Suspect]
     Indication: ASTHENIA
     Route: 065
  7. CEFTAZIDIME [Concomitant]
     Route: 065

REACTIONS (6)
  - ESCHERICHIA INFECTION [None]
  - HEPATIC ENZYME INCREASED [None]
  - PSEUDOMONAS INFECTION [None]
  - METABOLIC ACIDOSIS [None]
  - GENERAL PHYSICAL HEALTH DETERIORATION [None]
  - B-CELL TYPE ACUTE LEUKAEMIA [None]
